FAERS Safety Report 12860574 (Version 1)
Quarter: 2016Q4

REPORT INFORMATION
  Report Type: Spontaneous
  Country: PE (occurrence: PE)
  Receive Date: 20161019
  Receipt Date: 20161019
  Transmission Date: 20170207
  Serious: Yes (Other)
  Sender: FDA-Public Use
  Company Number: PE-PFIZER INC-2016259958

PATIENT
  Age: 85 Year
  Sex: Female

DRUGS (1)
  1. AMLODIPINE BESYLATE AND ATORVASTATIN CALCIUM [Suspect]
     Active Substance: AMLODIPINE BESYLATE\ATORVASTATIN CALCIUM
     Indication: ANGINA PECTORIS
     Dosage: 5/10 MG, UNK
     Dates: start: 2006

REACTIONS (2)
  - Dacryostenosis acquired [Not Recovered/Not Resolved]
  - Visual acuity reduced [Not Recovered/Not Resolved]
